FAERS Safety Report 8760501 (Version 2)
Quarter: 2012Q4

REPORT INFORMATION
  Report Type: Spontaneous
  Country: GB (occurrence: None)
  Receive Date: 20120820
  Receipt Date: 20120924
  Transmission Date: 20130627
  Serious: Yes (Life-Threatening)
  Sender: FDA-Public Use
  Company Number: GB-JNJFOC-20120715172

PATIENT
  Age: 65 Year
  Sex: Male
  Weight: 62.5 kg

DRUGS (12)
  1. DECITABINE [Suspect]
     Indication: MYELODYSPLASTIC SYNDROME
     Route: 042
     Dates: start: 20120416
  2. CLENIL MODULITE CFC FREE INHALER (BECLOMETASONE DIPROPIONATE) INHALATION [Concomitant]
  3. SALBUTAMOL (SALBUTAMOL) INHALATION [Concomitant]
  4. SALMETEROL (SALMETEROL) INHALATION [Concomitant]
  5. AMTRIPTYLINE (AMITRIPTYLINE) [Concomitant]
  6. GABAPENTIN (GABAPENTIN) [Concomitant]
  7. DIHYDROCODIENE (DIHYDROCODEINE) [Concomitant]
  8. PARACETAMOL (PARACETAMOL) [Concomitant]
  9. VITAMIN D (ERGOCALCIFEROL) [Concomitant]
  10. HYDROCORTISONE (HYDROCORTISONE) [Concomitant]
  11. NICOTINE (NICOTINE) [Concomitant]
  12. ISPAGHULA (PLANTAGO OVATA) [Concomitant]

REACTIONS (3)
  - Left ventricular dysfunction [None]
  - Infection [None]
  - Cardiac failure congestive [None]
